FAERS Safety Report 5710686-7 (Version None)
Quarter: 2008Q2

REPORT INFORMATION
  Report Type: 
  Country: None (occurrence: None)
  Receive Date: 20080420
  Receipt Date: 20080408
  Transmission Date: 20081010
  Serious: Yes (Disabling)
  Sender: FDA-Public Use
  Company Number: PHHO2008GB04507

PATIENT
  Sex: Male
  Weight: 83 kg

DRUGS (6)
  1. VITAMIN D [Concomitant]
  2. CALCIUM [Concomitant]
  3. ZOL V ZOL + DOCETAXEL V ZOL + CELECOXIB [Suspect]
     Indication: METASTASES TO BONE
     Dosage: 4 MG, UNK
     Route: 042
     Dates: start: 20070405
  4. CELECOXIB [Suspect]
     Dosage: 400 MG, UNK
     Route: 048
     Dates: start: 20070305
  5. LISINOPRIL [Concomitant]
  6. ASPIRIN [Concomitant]

REACTIONS (4)
  - IMPAIRED HEALING [None]
  - OSTEONECROSIS [None]
  - PAIN IN JAW [None]
  - TOOTH EXTRACTION [None]
